FAERS Safety Report 7525283-0 (Version None)
Quarter: 2011Q2

REPORT INFORMATION
  Report Type: 
  Country: None (occurrence: None)
  Receive Date: 20110606
  Receipt Date: 20110523
  Transmission Date: 20111010
  Serious: Yes (Life-Threatening, Other)
  Sender: FDA-Public Use
  Company Number: FR-AMGEN-QUU439311

PATIENT
  Age: 51 Year
  Sex: Female

DRUGS (6)
  1. MOPRAL                             /00661201/ [Concomitant]
     Dosage: 20 MG, QD
     Route: 048
  2. VOLTARENE                          /00372302/ [Concomitant]
     Dosage: UNK UNK, UNK
  3. ENBREL [Suspect]
     Indication: RHEUMATOID ARTHRITIS
     Dosage: 50 MG, QWK
     Route: 058
     Dates: start: 20071113
  4. PREDNISONE [Concomitant]
     Dosage: 5 MG, QD
     Route: 048
  5. XANAX [Concomitant]
     Dosage: 0.25 MG, AS NEEDED
     Route: 048
  6. PROPOFAN                           /00765201/ [Concomitant]
     Dosage: UNK UNK, UNK

REACTIONS (1)
  - BREAST CANCER [None]
